FAERS Safety Report 4633552-7 (Version None)
Quarter: 2005Q2

REPORT INFORMATION
  Report Type: 
  Country: None (occurrence: None)
  Receive Date: 20050331
  Receipt Date: 20041227
  Transmission Date: 20051028
  Serious: Yes (Other)
  Sender: FDA-Public Use
  Company Number: 200416317BCC

PATIENT
  Age: 81 Year
  Sex: Male
  Weight: 81.6475 kg

DRUGS (3)
  1. ALEVE (CAPLET) [Suspect]
     Indication: PAIN
     Dosage: 220 MG TID ORAL
     Route: 048
     Dates: end: 20041201
  2. ALEVE (CAPLET) [Suspect]
     Indication: RHEUMATOID ARTHRITIS
     Dosage: 220 MG TID ORAL
     Route: 048
     Dates: end: 20041201
  3. LISINOPRIL [Concomitant]

REACTIONS (1)
  - BLOOD PRESSURE INCREASED [None]
